FAERS Safety Report 24451216 (Version 1)
Quarter: 2024Q4

REPORT INFORMATION
  Report Type: Spontaneous
  Country: US (occurrence: None)
  Receive Date: 20241017
  Receipt Date: 20241017
  Transmission Date: 20250115
  Serious: Yes (Hospitalization)
  Sender: Public
  Company Number: None

PATIENT
  Age: 61 Year
  Sex: Male

DRUGS (1)
  1. IMATINIB MESYLATE [Suspect]
     Active Substance: IMATINIB MESYLATE
     Indication: Cytogenetic abnormality
     Dosage: OTHER FREQUENCY : QD MONDAY, WED AND FRIDAY;?

REACTIONS (6)
  - Infection [None]
  - Urinary tract infection [None]
  - Hypersensitivity [None]
  - Coccidioidomycosis [None]
  - Chills [None]
  - Pain [None]
